FAERS Safety Report 20707878 (Version 1)
Quarter: 2022Q2

REPORT INFORMATION
  Report Type: Report from Study
  Country: TR (occurrence: TR)
  Receive Date: 20220414
  Receipt Date: 20220414
  Transmission Date: 20220721
  Serious: Yes (Death)
  Sender: FDA-Public Use
  Company Number: TR-ABBVIE-22K-161-4358017-00

PATIENT
  Age: 81 Year
  Sex: Female

DRUGS (3)
  1. CARBIDOPA\LEVODOPA [Suspect]
     Active Substance: CARBIDOPA\LEVODOPA
     Indication: Parkinson^s disease
     Dosage: MORNING DOSE (ML): 3.70 CONTINUOUS DOSE (ML): 1.50 EXTRA DOSE (ML): 1.00
     Route: 050
     Dates: start: 20220209
  2. CARBIDOPA\LEVODOPA [Suspect]
     Active Substance: CARBIDOPA\LEVODOPA
  3. enteral nutrition solution (NON-ABBVIE) [Concomitant]
     Indication: Feeding disorder
     Route: 050

REACTIONS (1)
  - General physical health deterioration [Fatal]

NARRATIVE: CASE EVENT DATE: 20220407
